FAERS Safety Report 23197607 (Version 1)
Quarter: 2023Q4

REPORT INFORMATION
  Report Type: Spontaneous
  Country: US (occurrence: US)
  Receive Date: 20231117
  Receipt Date: 20231117
  Transmission Date: 20240110
  Serious: No
  Sender: FDA-Public Use
  Company Number: US-INSUD PHARMA-2311US07885

PATIENT

DRUGS (1)
  1. ESTRADIOL [Suspect]
     Active Substance: ESTRADIOL
     Indication: Hormone replacement therapy
     Dosage: 1 MG DAILY
     Route: 062
     Dates: start: 20230321, end: 202307

REACTIONS (3)
  - Blood oestrogen decreased [Unknown]
  - Dermal absorption impaired [Unknown]
  - Product physical consistency issue [Unknown]

NARRATIVE: CASE EVENT DATE: 20230101
